FAERS Safety Report 4757363-7 (Version None)
Quarter: 2005Q3

REPORT INFORMATION
  Report Type: 
  Country: None (occurrence: None)
  Receive Date: 20050831
  Receipt Date: 20050822
  Transmission Date: 20060218
  Serious: Yes (Death)
  Sender: FDA-Public Use
  Company Number: US-JNJFOC-20050801049

PATIENT
  Sex: Female
  Weight: 58.97 kg

DRUGS (3)
  1. ULTRAM [Suspect]
     Indication: CYSTITIS INTERSTITIAL
     Route: 048
  2. WELLBUTRIN [Interacting]
     Indication: DEPRESSION
  3. MEDICATION NOS [Concomitant]
     Indication: BLADDER DISORDER

REACTIONS (3)
  - ACCIDENTAL OVERDOSE [None]
  - DRUG INTERACTION [None]
  - RESPIRATORY DISTRESS [None]
